FAERS Safety Report 7444884-1 (Version None)
Quarter: 2011Q2

REPORT INFORMATION
  Report Type: 
  Country: None (occurrence: None)
  Receive Date: 20110429
  Receipt Date: 20110418
  Transmission Date: 20111010
  Serious: Yes (Disabling)
  Sender: FDA-Public Use
  Company Number: PHHY2011AU09180

PATIENT
  Sex: Male

DRUGS (3)
  1. EXJADE [Suspect]
     Dosage: 500 MG, BID
     Route: 048
  2. ESOMEPRAZOLE MAGNESIUM [Concomitant]
     Dosage: 40 MG,DAILY
  3. EXJADE [Suspect]
     Indication: MYELODYSPLASTIC SYNDROME
     Dosage: 500 MG, QID
     Route: 048
     Dates: start: 20070101

REACTIONS (4)
  - PAIN IN EXTREMITY [None]
  - DIARRHOEA [None]
  - BLOOD IRON INCREASED [None]
  - MOUTH ULCERATION [None]
